FAERS Safety Report 9551273 (Version 1)
Quarter: 2013Q3

REPORT INFORMATION
  Report Type: Other
  Country: JP (occurrence: JP)
  Receive Date: 20130925
  Receipt Date: 20130925
  Transmission Date: 20140515
  Serious: Yes (Hospitalization, Other)
  Sender: FDA-Public Use
  Company Number: JP-ACTELION-A-CH2013-88766

PATIENT
  Age: 62 Year
  Sex: Female

DRUGS (2)
  1. TRACLEER [Suspect]
     Indication: PULMONARY HYPERTENSION
     Dosage: UNK
     Route: 048
     Dates: start: 201008
  2. ADCIRCA [Concomitant]
     Dosage: UNK
     Dates: start: 201008

REACTIONS (5)
  - Pulmonary hypertension [Recovering/Resolving]
  - Condition aggravated [Recovering/Resolving]
  - Right ventricular systolic pressure increased [Recovering/Resolving]
  - No therapeutic response [Recovering/Resolving]
  - Angioplasty [Recovering/Resolving]
